FAERS Safety Report 7488069-1 (Version None)
Quarter: 2011Q2

REPORT INFORMATION
  Report Type: 
  Country: None (occurrence: None)
  Receive Date: 20110511
  Receipt Date: 20110505
  Transmission Date: 20111010
  Serious: Yes (Death, Hospitalization)
  Sender: FDA-Public Use
  Company Number: GER/UKI/11/0018183

PATIENT
  Age: 63 Year
  Sex: Female

DRUGS (2)
  1. NUTRITIONAL SUPPLEMENT (ALL OTHER THERAPEUTIC PRODUCTS) [Suspect]
     Indication: NUTRITIONAL SUPPORT
     Dosage: 1 IN 1 D, INTRAVENOUS
     Route: 042
  2. OMEPRAZOLE [Suspect]
     Indication: PRODUCT USED FOR UNKNOWN INDICATION

REACTIONS (15)
  - BRONCHITIS CHRONIC [None]
  - EMPHYSEMA [None]
  - BLOOD BICARBONATE DECREASED [None]
  - BLOOD SODIUM DECREASED [None]
  - INCREASED VISCOSITY OF BRONCHIAL SECRETION [None]
  - TRACHEAL OBSTRUCTION [None]
  - PRODUCTIVE COUGH [None]
  - PNEUMONIA [None]
  - HYPERVENTILATION [None]
  - HYPERCHLORAEMIA [None]
  - BACTERAEMIA [None]
  - DEVICE RELATED SEPSIS [None]
  - BLOOD CREATININE INCREASED [None]
  - LOWER RESPIRATORY TRACT INFECTION [None]
  - ACIDOSIS HYPERCHLORAEMIC [None]
